FAERS Safety Report 5514387-X (Version None)
Quarter: 2007Q4

REPORT INFORMATION
  Report Type: 
  Country: None (occurrence: None)
  Receive Date: 20071113
  Receipt Date: 20070504
  Transmission Date: 20080405
  Serious: No
  Sender: FDA-Public Use
  Company Number: A0649978A

PATIENT
  Age: 77 Year
  Sex: Male

DRUGS (12)
  1. COREG [Suspect]
     Dosage: 25MG TWICE PER DAY
     Route: 048
     Dates: start: 20070101, end: 20070401
  2. SYNTHROID [Concomitant]
  3. HYDROCORTISONE [Concomitant]
  4. ISOSORBID MONONITRATE [Concomitant]
  5. ALLOPURINOL [Concomitant]
  6. GEMFIBROZIL [Concomitant]
  7. FUROSEMIDE [Concomitant]
  8. DOXEPIN HCL [Concomitant]
  9. SIMVASTATIN [Concomitant]
  10. ASPIRIN [Concomitant]
  11. CALCIUM WITH VITAMIN D [Concomitant]
  12. UNKNOWN MEDICATION [Concomitant]

REACTIONS (1)
  - COUGH [None]
